FAERS Safety Report 17091670 (Version 1)
Quarter: 2019Q4

REPORT INFORMATION
  Report Type: Spontaneous
  Country: CA (occurrence: CA)
  Receive Date: 20191129
  Receipt Date: 20191129
  Transmission Date: 20200122
  Serious: Yes (Other)
  Sender: FDA-Public Use
  Company Number: CA-TEVA-2019-CA-1144955

PATIENT
  Sex: Female

DRUGS (1)
  1. PREDNISONE. [Suspect]
     Active Substance: PREDNISONE
     Dosage: DOSE AND FREQUENCY: UNKNOWN, NUMEROUS TREATMENTS
     Route: 065
     Dates: start: 2017

REACTIONS (3)
  - Defaecation urgency [Unknown]
  - Rectal haemorrhage [Unknown]
  - Diarrhoea [Unknown]
